FAERS Safety Report 4412109-7 (Version None)
Quarter: 2004Q3

REPORT INFORMATION
  Report Type: 
  Country: None (occurrence: None)
  Receive Date: 20040730
  Receipt Date: 20040720
  Transmission Date: 20050211
  Serious: Yes (Hospitalization)
  Sender: FDA-Public Use
  Company Number: GB-GLAXOSMITHKLINE-B0339907A

PATIENT
  Age: 43 Year
  Sex: Male
  Weight: 70 kg

DRUGS (7)
  1. ZYBAN [Suspect]
     Route: 048
     Dates: start: 20040626, end: 20040707
  2. ATENOLOL [Concomitant]
     Indication: AGE INDETERMINATE MYOCARDIAL INFARCTION
     Dosage: 25MG PER DAY
     Route: 048
     Dates: start: 20020101
  3. RAMIPRIL [Concomitant]
     Indication: AGE INDETERMINATE MYOCARDIAL INFARCTION
     Dosage: 10MG PER DAY
     Route: 048
     Dates: start: 20020101
  4. MIXTARD HUMAN 70/30 [Concomitant]
     Route: 058
     Dates: start: 19900101
  5. PRAVASTATIN [Concomitant]
     Indication: AGE INDETERMINATE MYOCARDIAL INFARCTION
     Dosage: 40MG PER DAY
     Route: 048
     Dates: start: 20020101
  6. ASPIRIN [Concomitant]
     Indication: AGE INDETERMINATE MYOCARDIAL INFARCTION
     Dosage: 75MG PER DAY
     Route: 048
     Dates: start: 20020101
  7. NIQUITIN CQ [Concomitant]
     Dosage: 21MG PER DAY
     Route: 023
     Dates: start: 20040703

REACTIONS (7)
  - CONDITION AGGRAVATED [None]
  - EYE PRURITUS [None]
  - EYE REDNESS [None]
  - EYE SWELLING [None]
  - OEDEMA PERIPHERAL [None]
  - RASH PRURITIC [None]
  - URTICARIA [None]
